FAERS Safety Report 8879944 (Version 2)
Quarter: 2013Q4

REPORT INFORMATION
  Report Type: Spontaneous
  Country: FR (occurrence: FR)
  Receive Date: 20121031
  Receipt Date: 20131002
  Transmission Date: 20140711
  Serious: Yes (Hospitalization)
  Sender: FDA-Public Use
  Company Number: FR-B.I. PHARMACEUTICALS,INC./RIDGEFIELD-2012-FF-01542FF

PATIENT
  Age: 79 Year
  Sex: Female

DRUGS (11)
  1. PRADAXA [Suspect]
     Indication: ATRIAL FIBRILLATION
     Dosage: 220 MG
     Route: 048
  2. EUPANTOL [Suspect]
     Dosage: 20 MG
     Route: 048
  3. COVERSYL [Concomitant]
     Route: 048
  4. TAHOR [Concomitant]
     Route: 048
  5. DIFFU K [Concomitant]
     Route: 048
  6. TRAMADOL [Concomitant]
  7. LEXOMIL [Concomitant]
  8. LASILIX [Concomitant]
  9. FUMAFER [Concomitant]
  10. BETASERC [Concomitant]
  11. LEVOTHYROX [Concomitant]

REACTIONS (2)
  - Atrial thrombosis [Not Recovered/Not Resolved]
  - Drug ineffective [Not Recovered/Not Resolved]
